FAERS Safety Report 25104670 (Version 1)
Quarter: 2025Q1

REPORT INFORMATION
  Report Type: Spontaneous
  Country: US (occurrence: US)
  Receive Date: 20250321
  Receipt Date: 20250321
  Transmission Date: 20250409
  Serious: No
  Sender: ACADIA PHARMACEUTICALS
  Company Number: US-ACADIA PHARMACEUTICALS INC.-ACA-2025-TRF-002593

PATIENT

DRUGS (3)
  1. DAYBUE [Suspect]
     Active Substance: TROFINETIDE
     Indication: Product used for unknown indication
     Dosage: 4000 MILLIGRAM (20 MILILITER)
     Route: 048
     Dates: start: 202305
  2. CLOBAZAM [Concomitant]
     Active Substance: CLOBAZAM
  3. PHENOBARBITAL [Concomitant]
     Active Substance: PHENOBARBITAL

REACTIONS (1)
  - Vitamin D increased [Unknown]
